FAERS Safety Report 4283389-6 (Version None)
Quarter: 2004Q1

REPORT INFORMATION
  Report Type: 
  Country: None (occurrence: None)
  Receive Date: 20040129
  Receipt Date: 20040115
  Transmission Date: 20041129
  Serious: Yes (Death, Other)
  Sender: FDA-Public Use
  Company Number: 2004004030

PATIENT
  Age: 75 Year
  Sex: Female
  Weight: 52.8 kg

DRUGS (7)
  1. DIFLUCAN [Suspect]
     Indication: SYSTEMIC MYCOSIS
     Dosage: 200 MG (DAILY), INTRAVENOUS
     Route: 042
     Dates: start: 20031218, end: 20031222
  2. LIVACT (AMINO ACIDS NOS) [Concomitant]
  3. CEFCAPENE PIVOXIL HYDROCHLORIDE [Concomitant]
  4. ALL OTHER THERAPEUTIC PRODUCTS [Concomitant]
  5. GLYCYRON      (AMINOACETIC ACID, DL-METHIONINE, GLYCYRRHIZIC ACID) [Concomitant]
  6. AMLODIPINE BESYLATE [Concomitant]
  7. FUROSEMIDE [Concomitant]

REACTIONS (8)
  - BLOOD PRESSURE DECREASED [None]
  - BODY TEMPERATURE INCREASED [None]
  - CONVULSION [None]
  - DEPRESSED LEVEL OF CONSCIOUSNESS [None]
  - DIALYSIS [None]
  - HEPATIC FAILURE [None]
  - MULTI-ORGAN FAILURE [None]
  - SEPSIS [None]
